FAERS Safety Report 9355123 (Version 1)
Quarter: 2013Q2

REPORT INFORMATION
  Report Type: Spontaneous
  Country: US (occurrence: US)
  Receive Date: 20130619
  Receipt Date: 20130619
  Transmission Date: 20140414
  Serious: No
  Sender: FDA-Public Use
  Company Number: US-009507513-1306USA002644

PATIENT
  Sex: Male

DRUGS (3)
  1. ZETIA [Suspect]
     Route: 048
  2. VICTOZA [Concomitant]
     Dosage: 0.6 MG, FREQUENCY UNKNOWN
  3. METFORMIN [Concomitant]

REACTIONS (3)
  - Abdominal discomfort [Unknown]
  - Abdominal pain [Unknown]
  - Dyspepsia [Unknown]
